FAERS Safety Report 24201300 (Version 2)
Quarter: 2024Q3

REPORT INFORMATION
  Report Type: Spontaneous
  Country: US (occurrence: US)
  Receive Date: 20240812
  Receipt Date: 20240920
  Transmission Date: 20241016
  Serious: Yes (Other)
  Sender: NOVO NORDISK
  Company Number: US-NOVOPROD-1263541

PATIENT
  Age: 66 Year
  Sex: Female

DRUGS (2)
  1. LEVEMIR [Suspect]
     Active Substance: INSULIN DETEMIR
     Indication: Myocardial infarction
     Dosage: 5 IU MORNING
     Route: 058
     Dates: start: 2014
  2. LEVEMIR [Suspect]
     Active Substance: INSULIN DETEMIR
     Dosage: 15 IU EVENING
     Route: 058

REACTIONS (2)
  - Cataract [Recovered/Resolved]
  - Off label use [Recovered/Resolved]

NARRATIVE: CASE EVENT DATE: 20220101
